FAERS Safety Report 25982953 (Version 1)
Quarter: 2025Q4

REPORT INFORMATION
  Report Type: Spontaneous
  Country: US (occurrence: US)
  Receive Date: 20251031
  Receipt Date: 20251031
  Transmission Date: 20260118
  Serious: No
  Sender: ROCHE
  Company Number: US-ROCHE-10000417767

PATIENT
  Sex: Female

DRUGS (1)
  1. XOLAIR [Suspect]
     Active Substance: OMALIZUMAB
     Indication: Systemic mastocytosis
     Dosage: 300 MG/2 ML
     Route: 058
     Dates: start: 202507

REACTIONS (4)
  - Mastocytosis [Unknown]
  - Illness [Unknown]
  - Headache [Unknown]
  - Arthralgia [Unknown]
